FAERS Safety Report 17627900 (Version 1)
Quarter: 2020Q2

REPORT INFORMATION
  Report Type: Report from Study
  Country: None (occurrence: CO)
  Receive Date: 20200405
  Receipt Date: 20200405
  Transmission Date: 20200713
  Serious: Yes (Other)
  Sender: FDA-Public Use
  Company Number: CO-ABBVIE-20K-036-3275372-00

PATIENT
  Age: 54 Year
  Sex: Male
  Weight: 86 kg

DRUGS (3)
  1. HUMIRA [Suspect]
     Active Substance: ADALIMUMAB
     Indication: ANKYLOSING SPONDYLITIS
     Route: 058
     Dates: end: 20200113
  2. STOPEN [Concomitant]
     Indication: PAIN
     Route: 048
     Dates: start: 2017, end: 2018
  3. HUMIRA [Suspect]
     Active Substance: ADALIMUMAB
     Indication: ANKYLOSING SPONDYLITIS
     Route: 058
     Dates: end: 20150520

REACTIONS (9)
  - Weight increased [Recovering/Resolving]
  - Lacrimation increased [Recovering/Resolving]
  - Back pain [Recovering/Resolving]
  - Paraesthesia [Unknown]
  - Vision blurred [Recovering/Resolving]
  - Spinal disorder [Unknown]
  - Eye infection [Recovering/Resolving]
  - Mobility decreased [Unknown]
  - Visual impairment [Recovering/Resolving]

NARRATIVE: CASE EVENT DATE: 201911
